FAERS Safety Report 7842543-4 (Version None)
Quarter: 2011Q4

REPORT INFORMATION
  Report Type: 
  Country: None (occurrence: None)
  Receive Date: 20111025
  Receipt Date: 20111019
  Transmission Date: 20120403
  Serious: Yes (Other)
  Sender: FDA-Public Use
  Company Number: US-PFIZER INC-2011253028

PATIENT
  Sex: Female

DRUGS (3)
  1. COPAXONE [Suspect]
     Dosage: UNK
  2. SOLU-MEDROL [Suspect]
     Dosage: UNK
  3. AVONEX [Suspect]
     Dosage: UNK

REACTIONS (4)
  - SKIN DISORDER [None]
  - INFLUENZA LIKE ILLNESS [None]
  - SYNCOPE [None]
  - BLOOD PRESSURE INCREASED [None]
